FAERS Safety Report 4363664-7 (Version None)
Quarter: 2004Q2

REPORT INFORMATION
  Report Type: 
  Country: None (occurrence: None)
  Receive Date: 20040524
  Receipt Date: 20040524
  Transmission Date: 20050107
  Serious: Yes (Death)
  Sender: FDA-Public Use
  Company Number: None

PATIENT
  Age: 58 Year
  Sex: Male
  Weight: 75.7507 kg

DRUGS (11)
  1. AMIODARONE HCL [Suspect]
     Indication: ARRHYTHMIA
     Dosage: 200 MG DAILY ORAL
     Route: 048
     Dates: start: 20021101, end: 20031127
  2. COUMADIN [Concomitant]
  3. BUMEX [Concomitant]
  4. LANOXIN [Concomitant]
  5. LIPITOR [Concomitant]
  6. LOPRESSOR [Concomitant]
  7. LISINOPRIL [Concomitant]
  8. GLUCOTROL XL [Concomitant]
  9. FOLIC ACID [Concomitant]
  10. AICD [Concomitant]
  11. B6 [Concomitant]

REACTIONS (5)
  - HYPOTENSION [None]
  - NIGHTMARE [None]
  - PHOTOPHOBIA [None]
  - PULMONARY FIBROSIS [None]
  - PYREXIA [None]
